FAERS Safety Report 15066585 (Version 1)
Quarter: 2018Q2

REPORT INFORMATION
  Report Type: Spontaneous
  Country: GR (occurrence: GR)
  Receive Date: 20180626
  Receipt Date: 20180626
  Transmission Date: 20180711
  Serious: Yes (Hospitalization, Other)
  Sender: FDA-Public Use
  Company Number: GR-AMGEN-GRCSP2018068919

PATIENT
  Age: 53 Year
  Sex: Female

DRUGS (8)
  1. SEROPRAM [Concomitant]
     Dosage: UNK
  2. CORTISONE [Suspect]
     Active Substance: CORTISONE\HYDROCORTISONE
     Indication: BURNING SENSATION
     Dosage: UNK
     Route: 065
     Dates: end: 2018
  3. XOZAL [Suspect]
     Active Substance: LEVOCETIRIZINE
     Indication: BURNING SENSATION
     Dosage: UNK
     Route: 065
  4. VITAMIN B12 [Concomitant]
     Active Substance: CYANOCOBALAMIN
     Dosage: UNK
  5. AZATHIOPRINE. [Concomitant]
     Active Substance: AZATHIOPRINE
     Indication: CROHN^S DISEASE
     Dosage: UNK
  6. VITAMIN D [Concomitant]
     Active Substance: CHOLECALCIFEROL
     Dosage: UNK
  7. PROLIA [Suspect]
     Active Substance: DENOSUMAB
     Indication: OSTEOPOROSIS
     Dosage: UNK
     Route: 065
     Dates: start: 20180425, end: 20180425
  8. XANAX [Concomitant]
     Active Substance: ALPRAZOLAM
     Dosage: UNK

REACTIONS (6)
  - Nausea [Unknown]
  - Decreased appetite [Unknown]
  - Hypotonia [Unknown]
  - Mental disorder [Not Recovered/Not Resolved]
  - Anxiety [Unknown]
  - Burning sensation [Not Recovered/Not Resolved]

NARRATIVE: CASE EVENT DATE: 201805
